FAERS Safety Report 7386758 (Version 2)
Quarter: 2012Q4

REPORT INFORMATION
  Report Type: Report from Study
  Country: FR (occurrence: FR)
  Receive Date: 20100513
  Receipt Date: 20121001
  Transmission Date: 20130627
  Serious: Yes (Hospitalization)
  Sender: FDA-Public Use
  Company Number: PHHO2010FR06869

PATIENT
  Age: 54 Year
  Sex: Male
  Weight: 94 kg

DRUGS (2)
  1. CERTICAN [Suspect]
     Indication: RENAL TRANSPLANT
     Dosage: UNK
     Route: 048
     Dates: start: 20100105
  2. MYFORTIC [Concomitant]
     Indication: RENAL TRANSPLANT

REACTIONS (1)
  - Hernial eventration [Recovering/Resolving]
